FAERS Safety Report 19839817 (Version 1)
Quarter: 2021Q3

REPORT INFORMATION
  Report Type: Spontaneous
  Country: US (occurrence: US)
  Receive Date: 20210916
  Receipt Date: 20210916
  Transmission Date: 20211014
  Serious: No
  Sender: FDA-Public Use
  Company Number: None

PATIENT

DRUGS (1)
  1. REGEN?COV [Suspect]
     Active Substance: CASIRIVIMAB\IMDEVIMAB
     Route: 058

REACTIONS (6)
  - Dizziness [None]
  - Chills [None]
  - Diarrhoea [None]
  - Nausea [None]
  - Loss of consciousness [None]
  - Dehydration [None]

NARRATIVE: CASE EVENT DATE: 20210907
